FAERS Safety Report 7389944-9 (Version None)
Quarter: 2011Q2

REPORT INFORMATION
  Report Type: 
  Country: None (occurrence: None)
  Receive Date: 20110401
  Receipt Date: 20110323
  Transmission Date: 20111010
  Serious: Yes (Hospitalization, Disabling)
  Sender: FDA-Public Use
  Company Number: FR-ASTRAZENECA-2011SE16980

PATIENT
  Sex: Female

DRUGS (5)
  1. MOPRAL [Interacting]
     Indication: GASTRIC DISORDER
     Route: 048
     Dates: start: 20091201, end: 20101126
  2. CORTANCYL [Suspect]
     Indication: MUSCULOSKELETAL PAIN
     Route: 048
  3. SEROPLEX [Interacting]
     Indication: DEPRESSION
     Route: 048
     Dates: end: 20101226
  4. PARACETAMOL [Suspect]
     Indication: PAIN
     Route: 065
  5. CONTRAMAL [Suspect]
     Indication: MUSCULOSKELETAL PAIN
     Route: 048

REACTIONS (2)
  - HYPONATRAEMIA [None]
  - DRUG INTERACTION [None]
